FAERS Safety Report 10403218 (Version 1)
Quarter: 2014Q3

REPORT INFORMATION
  Report Type: Spontaneous
  Country: US (occurrence: None)
  Receive Date: 20140820
  Receipt Date: 20140820
  Transmission Date: 20150326
  Serious: Yes (Other)
  Sender: FDA-Public Use
  Company Number: 2010S1004531

PATIENT
  Age: 61 Year
  Sex: Female

DRUGS (9)
  1. DIOVAN [Concomitant]
     Active Substance: VALSARTAN
  2. TOPROL (METOPROLOL SUCCINATE) [Concomitant]
  3. PHOSPHO-SODA [Suspect]
     Active Substance: SODIUM PHOSPHATE, DIBASIC\SODIUM PHOSPHATE, MONOBASIC
     Indication: COLONOSCOPY
     Dosage: 2 IN 1 DAYS, ORAL
     Route: 048
     Dates: start: 20070912, end: 20070912
  4. SULAR (NISOLDIPINE) [Concomitant]
  5. PHOSPHO-SODA [Suspect]
     Active Substance: SODIUM PHOSPHATE, DIBASIC\SODIUM PHOSPHATE, MONOBASIC
     Indication: COLONOSCOPY
  6. ASPIRIN (ACETYLSALICYLIC ACID) [Concomitant]
     Active Substance: ASPIRIN
  7. VITAMIN E [Concomitant]
     Active Substance: .ALPHA.-TOCOPHEROL
  8. LOPRESSOR [Concomitant]
     Active Substance: METOPROLOL TARTRATE
  9. ACCUPRIL [Concomitant]
     Active Substance: QUINAPRIL HYDROCHLORIDE

REACTIONS (22)
  - Tubulointerstitial nephritis [None]
  - Night sweats [None]
  - Renal cyst [None]
  - Injury [None]
  - Hyperhidrosis [None]
  - Abdominal pain upper [None]
  - Fatigue [None]
  - Renal failure chronic [None]
  - Hypokalaemia [None]
  - Anaemia [None]
  - Oedema peripheral [None]
  - Blood pressure abnormal [None]
  - Nocturia [None]
  - Hypertensive nephropathy [None]
  - Abdominal pain [None]
  - Red blood cell sedimentation rate increased [None]
  - Vomiting [None]
  - Hyperparathyroidism secondary [None]
  - Nephrosclerosis [None]
  - Pyrexia [None]
  - Diarrhoea [None]
  - Stress urinary incontinence [None]

NARRATIVE: CASE EVENT DATE: 200801
